FAERS Safety Report 9935487 (Version 1)
Quarter: 2014Q1

REPORT INFORMATION
  Report Type: Spontaneous
  Country: US (occurrence: US)
  Receive Date: 20140228
  Receipt Date: 20140228
  Transmission Date: 20141002
  Serious: No
  Sender: FDA-Public Use
  Company Number: US-PFIZER INC-2014057825

PATIENT
  Age: 75 Year
  Sex: Female
  Weight: 90.7 kg

DRUGS (2)
  1. GABAPENTIN [Suspect]
     Indication: DIABETIC NEUROPATHY
     Dosage: UNK
  2. HUMIRA [Concomitant]
     Indication: RHEUMATOID ARTHRITIS
     Dosage: UNK, EVERY TWO WEEKS

REACTIONS (1)
  - Drug ineffective [Unknown]
